FAERS Safety Report 21777330 (Version 1)
Quarter: 2022Q4

REPORT INFORMATION
  Report Type: Spontaneous
  Country: US (occurrence: US)
  Receive Date: 20221226
  Receipt Date: 20221226
  Transmission Date: 20230112
  Serious: Yes (Other)
  Sender: FDA-Public Use
  Company Number: US-APOTEX-2022AP017512

PATIENT
  Age: 5 Year
  Sex: Female

DRUGS (1)
  1. BIVALIRUDIN [Suspect]
     Active Substance: BIVALIRUDIN
     Indication: Thrombosis
     Dosage: UNK
     Route: 042

REACTIONS (1)
  - Ischaemic stroke [Unknown]
